FAERS Safety Report 5980843-3 (Version None)
Quarter: 2008Q4

REPORT INFORMATION
  Report Type: 
  Country: None (occurrence: None)
  Receive Date: 20081205
  Receipt Date: 20080603
  Transmission Date: 20090506
  Serious: No
  Sender: FDA-Public Use
  Company Number: A0730738A

PATIENT
  Age: 63 Year
  Sex: Female

DRUGS (2)
  1. COMMIT [Suspect]
     Dates: start: 20080601, end: 20080601
  2. NICOTINE [Suspect]

REACTIONS (5)
  - ABDOMINAL DISCOMFORT [None]
  - APPLICATION SITE PRURITUS [None]
  - APPLICATION SITE RASH [None]
  - HYPERSENSITIVITY [None]
  - PRODUCT QUALITY ISSUE [None]
